FAERS Safety Report 15001910 (Version 1)
Quarter: 2018Q2

REPORT INFORMATION
  Report Type: Spontaneous
  Country: AU (occurrence: AU)
  Receive Date: 20180612
  Receipt Date: 20180612
  Transmission Date: 20180711
  Serious: Yes (Hospitalization, Other)
  Sender: FDA-Public Use
  Company Number: AU-ABBVIE-18K-008-2379294-00

PATIENT
  Sex: Female

DRUGS (4)
  1. HUMIRA [Suspect]
     Active Substance: ADALIMUMAB
     Indication: PSORIASIS
  2. HUMIRA [Suspect]
     Active Substance: ADALIMUMAB
     Indication: SYNOVITIS
     Route: 058
     Dates: start: 201407, end: 201605
  3. METHOTREXATE. [Concomitant]
     Active Substance: METHOTREXATE
     Indication: SYNOVITIS
     Dates: start: 201108, end: 201304
  4. METHOTREXATE. [Concomitant]
     Active Substance: METHOTREXATE
     Indication: PSORIASIS
     Dates: start: 201407

REACTIONS (1)
  - Myxofibrosarcoma [Recovered/Resolved]

NARRATIVE: CASE EVENT DATE: 201608
